FAERS Safety Report 4588222-0 (Version None)
Quarter: 2005Q1

REPORT INFORMATION
  Report Type: 
  Country: None (occurrence: None)
  Receive Date: 20050221
  Receipt Date: 20050128
  Transmission Date: 20050727
  Serious: Yes (Other)
  Sender: FDA-Public Use
  Company Number: JP-ROCHE-394439

PATIENT
  Age: 7 Year
  Sex: Male

DRUGS (2)
  1. TAMIFLU [Suspect]
     Dosage: STOP DATE REPORTED AS JANUARY 2005.
     Route: 048
     Dates: start: 20050123
  2. CALONAL [Concomitant]
     Route: 048

REACTIONS (2)
  - BLOOD CREATINE PHOSPHOKINASE INCREASED [None]
  - MYALGIA [None]
